FAERS Safety Report 19854851 (Version 2)
Quarter: 2021Q4

REPORT INFORMATION
  Report Type: Spontaneous
  Country: GB (occurrence: GB)
  Receive Date: 20210920
  Receipt Date: 20211223
  Transmission Date: 20220303
  Serious: Yes (Hospitalization)
  Sender: FDA-Public Use
  Company Number: GB-NOVOPROD-840040

PATIENT
  Age: 70 Year
  Sex: Male
  Weight: 140 kg

DRUGS (12)
  1. OZEMPIC [Suspect]
     Active Substance: SEMAGLUTIDE
     Indication: Type 2 diabetes mellitus
     Dosage: 0.25 MG, QD
     Route: 058
     Dates: start: 20210316, end: 20210406
  2. OZEMPIC [Suspect]
     Active Substance: SEMAGLUTIDE
     Dosage: 1 MG, QD
     Route: 058
     Dates: start: 20210511
  3. OZEMPIC [Suspect]
     Active Substance: SEMAGLUTIDE
     Dosage: 0.5 MG, QD
     Route: 058
     Dates: start: 20210413, end: 20210504
  4. ATENOLOL [Concomitant]
     Active Substance: ATENOLOL
     Dosage: 50.0,MG,
     Dates: start: 2009
  5. INDAPAMIDE [Concomitant]
     Active Substance: INDAPAMIDE
     Dosage: 1.5,MG,
     Dates: start: 201810
  6. GLICLAZIDE [Concomitant]
     Active Substance: GLICLAZIDE
     Dosage: 80.0,MG,
     Dates: start: 20000714
  7. PERINDOPRIL [Concomitant]
     Active Substance: PERINDOPRIL
     Dosage: 4.0,MG,
     Dates: start: 2005
  8. SPIRONOLACTONE [Concomitant]
     Active Substance: SPIRONOLACTONE
     Dosage: 25.0,MG,
     Dates: start: 20000714
  9. FUROSEMIDE [Concomitant]
     Active Substance: FUROSEMIDE
     Dosage: 40.0,MG,
     Dates: start: 20130405
  10. WARFARIN [Concomitant]
     Active Substance: WARFARIN
     Dosage: 6.0,MG,
     Dates: start: 20050627
  11. METFORMIN [Concomitant]
     Active Substance: METFORMIN HYDROCHLORIDE
     Dosage: 2000.0,MG,
     Dates: start: 2016
  12. CANAGLIFLOZIN [Concomitant]
     Active Substance: CANAGLIFLOZIN
     Dosage: 100.0,MG,
     Dates: start: 2016, end: 20201130

REACTIONS (2)
  - Vomiting [Recovered/Resolved]
  - Hypokalaemia [Recovered/Resolved]

NARRATIVE: CASE EVENT DATE: 20210622
